FAERS Safety Report 16908612 (Version 1)
Quarter: 2019Q4

REPORT INFORMATION
  Report Type: Spontaneous
  Country: US (occurrence: US)
  Receive Date: 20191011
  Receipt Date: 20191011
  Transmission Date: 20200122
  Serious: No
  Sender: FDA-Public Use
  Company Number: US-MSN LABORATORIES PRIVATE LIMITED-2075555

PATIENT
  Age: 30 Year
  Sex: Female
  Weight: 55.91 kg

DRUGS (6)
  1. VITAMINS [Concomitant]
     Active Substance: VITAMINS
     Route: 065
  2. PREGABALIN. [Suspect]
     Active Substance: PREGABALIN
     Indication: FIBROMYALGIA
     Route: 048
     Dates: end: 20190905
  3. LEXOPRO (ESCITALOPRAM) [Concomitant]
     Route: 048
  4. BIRTH CONTROL MEDICATION [Concomitant]
     Active Substance: UNSPECIFIED INGREDIENT
     Route: 065
  5. PROBIOTIC [Concomitant]
     Active Substance: PROBIOTICS NOS
     Route: 065
  6. BUSPIRONE [Concomitant]
     Active Substance: BUSPIRONE HYDROCHLORIDE
     Route: 048

REACTIONS (1)
  - Drug hypersensitivity [Recovering/Resolving]
